FAERS Safety Report 21559145 (Version 2)
Quarter: 2022Q4

REPORT INFORMATION
  Report Type: Report from Study
  Country: IN (occurrence: None)
  Receive Date: 20221107
  Receipt Date: 20221108
  Transmission Date: 20230112
  Serious: Yes (Hospitalization)
  Sender: FDA-Public Use
  Company Number: IN-ROCHE-3203521

PATIENT
  Age: 47 Year
  Sex: Female
  Weight: 72.4 kg

DRUGS (17)
  1. CARBOPLATIN [Suspect]
     Active Substance: CARBOPLATIN
     Indication: Ovarian cancer
     Dosage: DATE OF LAST DOSE PRIOR TO EVENT: 27/SEP/2022
     Route: 042
     Dates: start: 20220526
  2. CARBOPLATIN [Suspect]
     Active Substance: CARBOPLATIN
     Dosage: DATE OF LAST DOSE PRIOR TO EVENT: 27/SEP/2022
     Route: 042
     Dates: start: 20220630
  3. CARBOPLATIN [Suspect]
     Active Substance: CARBOPLATIN
     Dosage: DATE OF LAST DOSE PRIOR TO EVENT: 27/SEP/2022
     Route: 042
     Dates: start: 20220721, end: 20220721
  4. PACLITAXEL [Suspect]
     Active Substance: PACLITAXEL
     Indication: Ovarian cancer
     Dosage: DATE OF LAST DOSE PRIOR TO EVENT: 27/SEP/2022
     Route: 042
     Dates: start: 20220526
  5. PACLITAXEL [Suspect]
     Active Substance: PACLITAXEL
     Dosage: DATE OF LAST DOSE PRIOR TO EVENT: 27/SEP/2022
     Route: 042
     Dates: start: 20220630
  6. PACLITAXEL [Suspect]
     Active Substance: PACLITAXEL
     Dosage: DATE OF LAST DOSE PRIOR TO EVENT: 27/SEP/2022
     Route: 042
     Dates: start: 20220721, end: 20220721
  7. BEVACIZUMAB [Suspect]
     Active Substance: BEVACIZUMAB
     Indication: Ovarian cancer
     Dosage: DATE OF LAST DOSE PRIOR TO EVENT: 27/SEP/2022
     Route: 042
     Dates: start: 20220630, end: 20220927
  8. BEVACIZUMAB [Suspect]
     Active Substance: BEVACIZUMAB
     Dosage: DATE OF LAST DOSE PRIOR TO EVENT: 27/SEP/2022
     Route: 042
     Dates: start: 20220811
  9. DYNAPAR INJECTION [Concomitant]
     Dates: start: 20221006, end: 20221006
  10. OTRIVIN [Concomitant]
     Active Substance: XYLOMETAZOLINE
     Dosage: 2 DROPS
     Dates: start: 20221006
  11. SODIUM CHLORIDE [Concomitant]
     Active Substance: SODIUM CHLORIDE
     Dates: start: 20221006
  12. METOCLOPRAMIDE HYDROCHLORIDE [Concomitant]
     Active Substance: METOCLOPRAMIDE HYDROCHLORIDE
     Dates: start: 20221006, end: 20221012
  13. PAN [Concomitant]
     Dates: start: 20221006, end: 20221019
  14. ECONORM [Concomitant]
     Dates: start: 20221009
  15. LESURIDE [Concomitant]
     Dates: start: 20221011
  16. PAN [Concomitant]
     Dates: start: 20221006, end: 20221017
  17. ACETAMINOPHEN [Concomitant]
     Active Substance: ACETAMINOPHEN
     Indication: Pyrexia
     Route: 042
     Dates: start: 20221006, end: 20221017

REACTIONS (1)
  - Intestinal obstruction [Recovered/Resolved]

NARRATIVE: CASE EVENT DATE: 20221005
